FAERS Safety Report 25299690 (Version 2)
Quarter: 2025Q2

REPORT INFORMATION
  Report Type: Report from Study
  Country: GB (occurrence: GB)
  Receive Date: 20250512
  Receipt Date: 20250527
  Transmission Date: 20250716
  Serious: Yes (Other)
  Sender: SANDOZ
  Company Number: GB-SANDOZ-SDZ2025GB030558

PATIENT
  Sex: Female

DRUGS (1)
  1. ERELZI [Suspect]
     Active Substance: ETANERCEPT-SZZS
     Indication: Rheumatoid arthritis
     Dosage: 50 MG, QW (ERELZI 50MG/1ML SOLUTION FOR INJECTION PRE-FILLED PENS (SANDOZ LTD) 4 PRE-FILLED DISPOSAB
     Route: 058

REACTIONS (2)
  - Tooth disorder [Unknown]
  - Dental implantation [Recovered/Resolved]
